FAERS Safety Report 19693805 (Version 3)
Quarter: 2022Q3

REPORT INFORMATION
  Report Type: Report from Study
  Country: CO (occurrence: CO)
  Receive Date: 20210813
  Receipt Date: 20220728
  Transmission Date: 20221027
  Serious: Yes (Other)
  Sender: FDA-Public Use
  Company Number: CO-ABBVIE-21K-036-3975133-00

PATIENT
  Age: 36 Year
  Sex: Female
  Weight: 63 kg

DRUGS (3)
  1. HUMIRA [Suspect]
     Active Substance: ADALIMUMAB
     Indication: Hidradenitis
     Route: 058
     Dates: start: 20171130
  2. HUMIRA [Suspect]
     Active Substance: ADALIMUMAB
     Indication: Hidradenitis
     Route: 058
     Dates: end: 20210619
  3. HUMIRA [Suspect]
     Active Substance: ADALIMUMAB
     Route: 058
     Dates: start: 2021

REACTIONS (18)
  - Asthmatic crisis [Recovered/Resolved]
  - Loss of personal independence in daily activities [Not Recovered/Not Resolved]
  - Oxygen saturation decreased [Recovered/Resolved]
  - Joint range of motion decreased [Not Recovered/Not Resolved]
  - Colitis [Recovering/Resolving]
  - Skin lesion [Recovered/Resolved]
  - Respiratory disorder [Recovering/Resolving]
  - Burning sensation [Not Recovered/Not Resolved]
  - Unevaluable event [Recovered/Resolved]
  - Purulent discharge [Recovered/Resolved]
  - COVID-19 [Recovered/Resolved with Sequelae]
  - Pneumonia [Recovered/Resolved]
  - Back pain [Recovered/Resolved]
  - Arthralgia [Recovering/Resolving]
  - Rash [Recovered/Resolved]
  - Hidradenitis [Recovered/Resolved]
  - Pain in extremity [Recovered/Resolved]
  - Pneumonia [Recovered/Resolved]

NARRATIVE: CASE EVENT DATE: 20210601
